FAERS Safety Report 9503893 (Version 1)
Quarter: 2013Q3

REPORT INFORMATION
  Report Type: Report from Study
  Country: US (occurrence: US)
  Receive Date: 20130906
  Receipt Date: 20130906
  Transmission Date: 20140515
  Serious: Yes (Hospitalization)
  Sender: FDA-Public Use
  Company Number: US-ABBOTT-13P-163-1140573-00

PATIENT
  Age: 38 Year
  Sex: Male
  Weight: 72.19 kg

DRUGS (1)
  1. HUMIRA [Suspect]
     Indication: CROHN^S DISEASE
     Dates: start: 2011, end: 20130810

REACTIONS (6)
  - Pulmonary contusion [Recovering/Resolving]
  - Road traffic accident [Recovering/Resolving]
  - Fracture [Recovering/Resolving]
  - Large intestine perforation [Recovering/Resolving]
  - Pain [Not Recovered/Not Resolved]
  - Hiccups [Recovered/Resolved]
